FAERS Safety Report 10401928 (Version 1)
Quarter: 2014Q3

REPORT INFORMATION
  Report Type: Report from Study
  Country: DE (occurrence: DE)
  Receive Date: 20140822
  Receipt Date: 20140822
  Transmission Date: 20150326
  Serious: Yes (Other)
  Sender: FDA-Public Use
  Company Number: DE-BAYER-2014-121758

PATIENT
  Age: 7 Year
  Sex: Male

DRUGS (1)
  1. BETAFERON [Suspect]
     Active Substance: INTERFERON BETA-1B
     Indication: MULTIPLE SCLEROSIS
     Dosage: 187.5 ?G, QOD
     Route: 058
     Dates: start: 20130523, end: 20140717

REACTIONS (2)
  - Multiple sclerosis relapse [Recovering/Resolving]
  - Off label use [None]

NARRATIVE: CASE EVENT DATE: 20130523
